FAERS Safety Report 23283614 (Version 1)
Quarter: 2023Q4

REPORT INFORMATION
  Report Type: Spontaneous
  Country: DE (occurrence: DE)
  Receive Date: 20231211
  Receipt Date: 20231211
  Transmission Date: 20240109
  Serious: Yes (Other)
  Sender: FDA-Public Use
  Company Number: DE-SAMSUNG BIOEPIS-SB-2023-32272

PATIENT
  Sex: Female

DRUGS (1)
  1. IMRALDI [Suspect]
     Active Substance: ADALIMUMAB
     Indication: Uveitis
     Dosage: UNKNOWN
     Route: 065

REACTIONS (15)
  - Panic attack [Unknown]
  - Blindness unilateral [Unknown]
  - Serpiginous choroiditis [Unknown]
  - Cataract [Unknown]
  - Corneal scar [Unknown]
  - Macular oedema [Unknown]
  - Chorioretinitis [Unknown]
  - Anxiety [Unknown]
  - Fear [Unknown]
  - Nightmare [Unknown]
  - Rash [Unknown]
  - Mental disorder [Unknown]
  - Disturbance in attention [Unknown]
  - Myalgia [Unknown]
  - Arthralgia [Unknown]
